FAERS Safety Report 17230328 (Version 2)
Quarter: 2020Q1

REPORT INFORMATION
  Report Type: Spontaneous
  Country: FR (occurrence: FR)
  Receive Date: 20200103
  Receipt Date: 20200205
  Transmission Date: 20200409
  Serious: Yes (Death, Hospitalization)
  Sender: FDA-Public Use
  Company Number: FR-BAUSCH-BL-2019-066638

PATIENT
  Age: 77 Year
  Sex: Male
  Weight: 64 kg

DRUGS (3)
  1. DARZALEX [Suspect]
     Active Substance: DARATUMUMAB
     Indication: PLASMA CELL MYELOMA RECURRENT
     Dosage: 16MG/KG
     Route: 042
     Dates: start: 20191202, end: 20191202
  2. VELCADE [Suspect]
     Active Substance: BORTEZOMIB
     Indication: PLASMA CELL MYELOMA RECURRENT
     Dosage: 1.3 MG/M2
     Route: 058
     Dates: start: 20191203, end: 20191203
  3. DEXAMETHASONE. [Suspect]
     Active Substance: DEXAMETHASONE
     Indication: PLASMA CELL MYELOMA RECURRENT
     Dosage: 20 MG PER CYCLE
     Route: 042
     Dates: start: 20191202, end: 20191202

REACTIONS (3)
  - Coma [Fatal]
  - Musculoskeletal stiffness [Fatal]
  - Pyrexia [Fatal]

NARRATIVE: CASE EVENT DATE: 20191205
